FAERS Safety Report 7615691-1 (Version None)
Quarter: 2011Q3

REPORT INFORMATION
  Report Type: 
  Country: None (occurrence: None)
  Receive Date: 20110715
  Receipt Date: 20110715
  Transmission Date: 20111222
  Serious: Yes (Hospitalization)
  Sender: FDA-Public Use
  Company Number: None

PATIENT
  Age: 9 Month
  Sex: Female
  Weight: 8.9 kg

DRUGS (3)
  1. ACETAMINOPHEN [Suspect]
     Indication: PROCEDURAL PAIN
     Dosage: 133MG Q 4 H PRN
     Route: 003
  2. ACETAMINOPHEN [Suspect]
     Indication: PROCEDURAL PAIN
     Dosage: 325MG X1 ONCE
  3. ACETAMINOPHEN [Suspect]
     Indication: PROCEDURAL PAIN
     Dosage: 1.34ML, Q4 PRN

REACTIONS (1)
  - ACUTE HEPATIC FAILURE [None]
